FAERS Safety Report 10569262 (Version 1)
Quarter: 2014Q4

REPORT INFORMATION
  Report Type: Report from Study
  Country: FR (occurrence: FR)
  Receive Date: 20141106
  Receipt Date: 20141106
  Transmission Date: 20150529
  Serious: Yes (Hospitalization, Other)
  Sender: FDA-Public Use
  Company Number: FR-ABBVIE-14P-056-1303904-00

PATIENT
  Age: 37 Year
  Sex: Female

DRUGS (7)
  1. VIREAD [Suspect]
     Active Substance: TENOFOVIR DISOPROXIL FUMARATE
     Indication: ANTIRETROVIRAL THERAPY
     Dosage: 1 COURSE
     Route: 065
  2. CORTICOSTEROIDS [Concomitant]
     Active Substance: CORTICOSTEROID NOS
     Indication: PRODUCT USED FOR UNKNOWN INDICATION
     Dosage: IN THIRD TRIMESTER
  3. RETROVIR [Suspect]
     Active Substance: ZIDOVUDINE
     Indication: ANTIRETROVIRAL THERAPY
     Dosage: 1 COURSE
     Route: 065
  4. VIRAMUNE [Suspect]
     Active Substance: NEVIRAPINE
     Indication: ANTIRETROVIRAL THERAPY
     Dosage: 1 COURSE
     Route: 065
  5. NORVIR [Suspect]
     Active Substance: RITONAVIR
     Indication: ANTIRETROVIRAL THERAPY
     Dosage: 1 COURSE
     Route: 065
  6. INVIRASE [Suspect]
     Active Substance: SAQUINAVIR MESYLATE
     Indication: ANTIRETROVIRAL THERAPY
     Dosage: 1 COURSE
     Route: 065
  7. EPIVIR [Suspect]
     Active Substance: LAMIVUDINE
     Indication: ANTIRETROVIRAL THERAPY
     Dosage: 1 COURSE
     Route: 065

REACTIONS (2)
  - Premature labour [Recovered/Resolved]
  - Premature rupture of membranes [Unknown]

NARRATIVE: CASE EVENT DATE: 20140924
